FAERS Safety Report 7961698-4 (Version None)
Quarter: 2011Q4

REPORT INFORMATION
  Report Type: 
  Country: None (occurrence: None)
  Receive Date: 20111207
  Receipt Date: 20111130
  Transmission Date: 20120403
  Serious: Yes (Other)
  Sender: FDA-Public Use
  Company Number: PHHY2011GB103486

PATIENT
  Age: 33 Year
  Sex: Male
  Weight: 105 kg

DRUGS (1)
  1. MIRTAZAPINE [Suspect]
     Indication: DEPRESSION
     Dosage: 15 MG, QD
     Dates: start: 20111010, end: 20111018

REACTIONS (5)
  - NEGATIVE THOUGHTS [None]
  - DEPRESSED MOOD [None]
  - SUICIDAL IDEATION [None]
  - AGITATION [None]
  - RASH [None]
